FAERS Safety Report 25047460 (Version 4)
Quarter: 2025Q2

REPORT INFORMATION
  Report Type: Spontaneous
  Country: US (occurrence: US)
  Receive Date: 20250306
  Receipt Date: 20250524
  Transmission Date: 20250717
  Serious: Yes (Hospitalization, Other)
  Sender: SANOFI AVENTIS
  Company Number: US-SA-2025SA066592

PATIENT
  Age: 78 Year
  Sex: Female
  Weight: 66.213 kg

DRUGS (24)
  1. DUPIXENT [Suspect]
     Active Substance: DUPILUMAB
     Indication: Dermatitis atopic
     Dosage: 300 MG, QOW
     Route: 058
     Dates: start: 202411
  2. DUPIXENT [Suspect]
     Active Substance: DUPILUMAB
     Indication: Dermatitis atopic
     Dosage: 300 MG, QOW
     Route: 058
  3. SEMAGLUTIDE [Suspect]
     Active Substance: SEMAGLUTIDE
  4. REPATHA [Concomitant]
     Active Substance: EVOLOCUMAB
  5. BIOTIN [Concomitant]
     Active Substance: BIOTIN
  6. VITAMINE K2+D3 [Concomitant]
  7. CYANOCOBALAMIN\FOLIC ACID [Concomitant]
     Active Substance: CYANOCOBALAMIN\FOLIC ACID
  8. CALCIUM [Concomitant]
     Active Substance: CALCIUM
  9. AVEENO [Concomitant]
     Active Substance: DIMETHICONE\HOMOSALATE\OCTINOXATE\OCTISALATE\TITANIUM DIOXIDE
  10. MUPIROCIN [Concomitant]
     Active Substance: MUPIROCIN
  11. FLUOROURACIL [Concomitant]
     Active Substance: FLUOROURACIL
  12. ESTRADIOL [Concomitant]
     Active Substance: ESTRADIOL
  13. PROGESTERONE [Concomitant]
     Active Substance: PROGESTERONE
  14. CYTOMEL [Concomitant]
     Active Substance: LIOTHYRONINE SODIUM
  15. LISINOPRIL [Concomitant]
     Active Substance: LISINOPRIL
  16. DOXYCYCLINE HYCLATE [Concomitant]
     Active Substance: DOXYCYCLINE HYCLATE
  17. PRASTERONE [Concomitant]
     Active Substance: PRASTERONE
  18. GABAPENTIN [Concomitant]
     Active Substance: GABAPENTIN
  19. VALTREX [Concomitant]
     Active Substance: VALACYCLOVIR HYDROCHLORIDE
  20. VOLTAREN ARTHRITIS PAIN [Concomitant]
     Active Substance: DICLOFENAC SODIUM
  21. ASPIRIN [Concomitant]
     Active Substance: ASPIRIN
  22. TESTOSTERONE [Concomitant]
     Active Substance: TESTOSTERONE
  23. SYNTHROID [Concomitant]
     Active Substance: LEVOTHYROXINE SODIUM
  24. CYANOCOBALAMIN [Concomitant]
     Active Substance: CYANOCOBALAMIN

REACTIONS (9)
  - Femur fracture [Unknown]
  - Fall [Unknown]
  - Dry skin [Unknown]
  - Lacrimation increased [Unknown]
  - Weight increased [Unknown]
  - Pancreatic disorder [Unknown]
  - Pruritus [Unknown]
  - Drug hypersensitivity [Unknown]
  - Injection site pain [Unknown]

NARRATIVE: CASE EVENT DATE: 20250201
